FAERS Safety Report 6401040-3 (Version None)
Quarter: 2009Q4

REPORT INFORMATION
  Report Type: 
  Country: None (occurrence: None)
  Receive Date: 20091015
  Receipt Date: 20091002
  Transmission Date: 20100525
  Serious: Yes (Hospitalization)
  Sender: FDA-Public Use
  Company Number: GB-RANBAXY-2009RR-28312

PATIENT
  Age: 62 Year
  Sex: Male

DRUGS (4)
  1. FLECAINIDE ACETATE [Suspect]
     Indication: NEURALGIA
     Dosage: 100 MG, BID
  2. FLECAINIDE ACETATE [Concomitant]
     Dosage: 50 MG, BID
  3. PHENAZOCINE [Concomitant]
     Indication: NEURALGIA
     Dosage: 10 MG, TID
  4. MORPHINE [Concomitant]
     Indication: NEURALGIA
     Dosage: 30 MG, BID

REACTIONS (1)
  - DELUSIONAL DISORDER, PERSECUTORY TYPE [None]
